FAERS Safety Report 15631438 (Version 1)
Quarter: 2018Q4

REPORT INFORMATION
  Report Type: Spontaneous
  Country: EC (occurrence: EC)
  Receive Date: 20181119
  Receipt Date: 20181119
  Transmission Date: 20190205
  Serious: Yes (Other)
  Sender: FDA-Public Use
  Company Number: EC-ROCHE-2215837

PATIENT
  Age: 57 Year
  Sex: Female

DRUGS (6)
  1. FEXOFENADINE [Suspect]
     Active Substance: FEXOFENADINE\FEXOFENADINE HYDROCHLORIDE
     Indication: URTICARIAL VASCULITIS
     Dosage: 20 MG, UNK
     Route: 065
  2. HYDROXYCHLOROQUINE [Suspect]
     Active Substance: HYDROXYCHLOROQUINE
     Indication: URTICARIAL VASCULITIS
     Route: 065
  3. HYDROXYZINE [Suspect]
     Active Substance: HYDROXYZINE HYDROCHLORIDE
     Indication: URTICARIAL VASCULITIS
     Route: 065
  4. OMALIZUMAB. [Suspect]
     Active Substance: OMALIZUMAB
     Route: 065
  5. PREDNISONE. [Suspect]
     Active Substance: PREDNISONE
     Indication: URTICARIAL VASCULITIS
     Route: 048
  6. OMALIZUMAB. [Suspect]
     Active Substance: OMALIZUMAB
     Indication: URTICARIAL VASCULITIS
     Route: 065

REACTIONS (6)
  - Depressed mood [Unknown]
  - Therapy non-responder [Unknown]
  - Urticarial vasculitis [Recovered/Resolved]
  - Product use in unapproved indication [Unknown]
  - Condition aggravated [Recovered/Resolved]
  - Quality of life decreased [Unknown]
